FAERS Safety Report 8076358-1 (Version None)
Quarter: 2012Q1

REPORT INFORMATION
  Report Type: 
  Country: None (occurrence: None)
  Receive Date: 20120125
  Receipt Date: 20120125
  Transmission Date: 20120608
  Serious: Yes (Hospitalization)
  Sender: FDA-Public Use
  Company Number: None

PATIENT
  Sex: Male
  Weight: 53 kg

DRUGS (20)
  1. TAXOL [Suspect]
     Dosage: 480 MG
     Dates: end: 20120105
  2. OXYGEN [Concomitant]
  3. COMBIVENT [Concomitant]
  4. CARBOPLATIN [Suspect]
     Dosage: 284 MG
     Dates: end: 20120105
  5. ATRIPLA [Concomitant]
  6. COMPAZINE [Concomitant]
  7. HEPARIN [Concomitant]
  8. SINGULAIR [Concomitant]
  9. COLACE [Concomitant]
  10. MARINOL [Concomitant]
  11. METHADONE HCL [Concomitant]
  12. DOXYCYCLINE [Concomitant]
  13. ASPIRIN [Concomitant]
  14. MULTI-VITAMIN [Concomitant]
  15. FOLIC ACID [Concomitant]
  16. SODIUM CHLORIDE [Concomitant]
  17. BACTRIM DS [Concomitant]
  18. MAGNESIUM OXIDE [Concomitant]
  19. PREDNISONE TAB [Concomitant]
  20. VITAMIN B1 TAB [Concomitant]

REACTIONS (4)
  - CHRONIC OBSTRUCTIVE PULMONARY DISEASE [None]
  - CONDITION AGGRAVATED [None]
  - NEUTROPENIA [None]
  - WHITE BLOOD CELLS URINE POSITIVE [None]
